FAERS Safety Report 7950725-6 (Version None)
Quarter: 2011Q4

REPORT INFORMATION
  Report Type: 
  Country: None (occurrence: None)
  Receive Date: 20111201
  Receipt Date: 20111125
  Transmission Date: 20120403
  Serious: Yes (Other)
  Sender: FDA-Public Use
  Company Number: GB-ACCORD-011467

PATIENT
  Sex: Male

DRUGS (1)
  1. DONEPEZIL HCL [Suspect]
     Indication: COGNITIVE DISORDER
     Dosage: INITIAL DOSE WAS 5 MG DAILY

REACTIONS (8)
  - PAIN [None]
  - COGNITIVE DISORDER [None]
  - SCRATCH [None]
  - SENSORY DISTURBANCE [None]
  - SOMATIC DELUSION [None]
  - PRURIGO [None]
  - NEURODERMATITIS [None]
  - PRURITUS [None]
